FAERS Safety Report 17533513 (Version 2)
Quarter: 2020Q2

REPORT INFORMATION
  Report Type: Spontaneous
  Country: US (occurrence: US)
  Receive Date: 20200312
  Receipt Date: 20200511
  Transmission Date: 20200713
  Serious: Yes (Other)
  Sender: FDA-Public Use
  Company Number: US-BAYER-2020-043386

PATIENT
  Age: 27 Year
  Sex: Female

DRUGS (1)
  1. MIRENA [Suspect]
     Active Substance: LEVONORGESTREL
     Indication: CONTRACEPTION
     Dosage: 20 ?G PER DAY, CONT
     Route: 015
     Dates: start: 20200123, end: 20200305

REACTIONS (1)
  - Embedded device [Recovered/Resolved]

NARRATIVE: CASE EVENT DATE: 20200305
